FAERS Safety Report 5720973-4 (Version None)
Quarter: 2008Q2

REPORT INFORMATION
  Report Type: 
  Country: None (occurrence: None)
  Receive Date: 20080424
  Receipt Date: 20080416
  Transmission Date: 20081010
  Serious: Yes (Other)
  Sender: FDA-Public Use
  Company Number: 2008009735

PATIENT
  Age: 79 Year
  Sex: Male

DRUGS (1)
  1. LISTERINE TOOTH DEFENSE (SODIUM FLUORIDE) [Suspect]
     Indication: DENTAL DISORDER PROPHYLAXIS
     Dosage: SMALL PART OF CAP, TWICE A DAY (2 IN 1 D), ORAL
     Route: 048
     Dates: start: 20080401, end: 20080406

REACTIONS (2)
  - AGEUSIA [None]
  - BURNING SENSATION [None]
